FAERS Safety Report 7608600-2 (Version None)
Quarter: 2011Q3

REPORT INFORMATION
  Report Type: 
  Country: None (occurrence: None)
  Receive Date: 20110714
  Receipt Date: 20110704
  Transmission Date: 20111222
  Serious: Yes (Other)
  Sender: FDA-Public Use
  Company Number: PHFR2011GB03697

PATIENT
  Sex: Female

DRUGS (2)
  1. CLOZAPINE [Suspect]
     Indication: BORDERLINE PERSONALITY DISORDER
     Route: 048
     Dates: start: 20100106
  2. CLOZAPINE [Suspect]
     Dosage: 400 MG/DAY
     Route: 048
     Dates: end: 20110611

REACTIONS (8)
  - HYPOPHAGIA [None]
  - HYPOTENSION [None]
  - NEUTROPENIA [None]
  - WHITE BLOOD CELL COUNT DECREASED [None]
  - FATIGUE [None]
  - LETHARGY [None]
  - COMPLEX PARTIAL SEIZURES [None]
  - GENERAL PHYSICAL HEALTH DETERIORATION [None]
